FAERS Safety Report 10033852 (Version 1)
Quarter: 2014Q1

REPORT INFORMATION
  Report Type: Spontaneous
  Country: US (occurrence: US)
  Receive Date: 20140325
  Receipt Date: 20140325
  Transmission Date: 20141002
  Serious: Yes (Hospitalization)
  Sender: FDA-Public Use
  Company Number: US-009507513-1403USA008686

PATIENT
  Sex: Female

DRUGS (2)
  1. COZAAR [Suspect]
     Route: 048
  2. DIOVAN [Concomitant]

REACTIONS (2)
  - Syncope [Recovering/Resolving]
  - Hypersensitivity [Recovering/Resolving]
